FAERS Safety Report 12494454 (Version 3)
Quarter: 2016Q4

REPORT INFORMATION
  Report Type: Spontaneous
  Country: DK (occurrence: FI)
  Receive Date: 20160623
  Receipt Date: 20161201
  Transmission Date: 20170207
  Serious: Yes (Life-Threatening, Hospitalization, Other)
  Sender: FDA-Public Use
  Company Number: FI-FRI-1000085436

PATIENT
  Age: 46 Year
  Sex: Male

DRUGS (9)
  1. CITALOPRAM HYDROBROMIDE - BP [Suspect]
     Active Substance: CITALOPRAM HYDROBROMIDE
     Indication: OBSESSIVE-COMPULSIVE DISORDER
     Dosage: 560 MG, SINGLE
     Route: 065
     Dates: start: 201605, end: 201605
  2. CITALOPRAM HYDROBROMIDE - BP [Suspect]
     Active Substance: CITALOPRAM HYDROBROMIDE
     Dosage: 20 MG, QD
     Route: 065
     Dates: start: 2006
  3. CITALOPRAM HYDROBROMIDE - BP [Suspect]
     Active Substance: CITALOPRAM HYDROBROMIDE
     Dosage: 80 MG, QD
     Route: 065
  4. LEPONEX [Suspect]
     Active Substance: CLOZAPINE
     Indication: SCHIZOAFFECTIVE DISORDER
     Dosage: 2100 MG, SINGLE
     Route: 065
     Dates: start: 201605, end: 201605
  5. LEPONEX [Suspect]
     Active Substance: CLOZAPINE
     Dosage: 300 MG, QD
     Route: 065
     Dates: start: 201608
  6. LEPONEX [Suspect]
     Active Substance: CLOZAPINE
     Dosage: 300 MG, QD
     Route: 065
     Dates: start: 2006
  7. TEMESTA [Suspect]
     Active Substance: LORAZEPAM
     Indication: ANXIETY
     Dosage: 7 MG, SINGLE
     Route: 065
     Dates: start: 201605, end: 201605
  8. TEMESTA [Suspect]
     Active Substance: LORAZEPAM
     Dosage: 1 MG, QD
     Route: 065
     Dates: start: 2007
  9. TEMESTA [Suspect]
     Active Substance: LORAZEPAM
     Dosage: 1.5 MG, QD
     Route: 065
     Dates: start: 2007

REACTIONS (12)
  - Incoherent [Unknown]
  - Prescribed overdose [Unknown]
  - Anuria [Recovered/Resolved]
  - Loss of consciousness [Unknown]
  - Suicide attempt [Unknown]
  - Tangentiality [Unknown]
  - Rhabdomyolysis [Recovered/Resolved with Sequelae]
  - Renal injury [Not Recovered/Not Resolved]
  - Blood creatinine increased [Unknown]
  - Intentional overdose [Unknown]
  - Suicidal behaviour [Recovered/Resolved]
  - Mental impairment [Unknown]

NARRATIVE: CASE EVENT DATE: 201605
